FAERS Safety Report 24373414 (Version 1)
Quarter: 2024Q3

REPORT INFORMATION
  Report Type: Spontaneous
  Country: US (occurrence: US)
  Receive Date: 20240927
  Receipt Date: 20240927
  Transmission Date: 20241017
  Serious: No
  Sender: VIVUS
  Company Number: US-VIVUS LLC-2023V1000821

PATIENT
  Age: 59 Year
  Sex: Female
  Weight: 139.38 kg

DRUGS (1)
  1. QSYMIA [Suspect]
     Active Substance: PHENTERMINE HYDROCHLORIDE\TOPIRAMATE
     Indication: Obesity
     Route: 048
     Dates: start: 20230710, end: 20230710

REACTIONS (9)
  - Pharyngeal swelling [Recovered/Resolved]
  - Dyspnoea [Recovered/Resolved]
  - Erythema [Recovered/Resolved]
  - Eye swelling [Recovered/Resolved]
  - Blister [Recovering/Resolving]
  - Mouth swelling [Recovered/Resolved]
  - Lip swelling [Recovered/Resolved]
  - Dermatochalasis [Not Recovered/Not Resolved]
  - Aphonia [Recovered/Resolved]

NARRATIVE: CASE EVENT DATE: 20230710
